FAERS Safety Report 17739632 (Version 1)
Quarter: 2020Q2

REPORT INFORMATION
  Report Type: Spontaneous
  Country: US (occurrence: US)
  Receive Date: 20200504
  Receipt Date: 20200504
  Transmission Date: 20200714
  Serious: No
  Sender: FDA-Public Use
  Company Number: US-DEXPHARM-20191238

PATIENT
  Age: 73 Year
  Sex: Male
  Weight: 81.6 kg

DRUGS (1)
  1. ISOSORBIDE MONONITRATE EXTENDED RELEASE TABLETS [Suspect]
     Active Substance: ISOSORBIDE MONONITRATE

REACTIONS (1)
  - Intentional product misuse [Unknown]
